FAERS Safety Report 9413196 (Version 2)
Quarter: 2013Q3

REPORT INFORMATION
  Report Type: Spontaneous
  Country: US (occurrence: US)
  Receive Date: 20130722
  Receipt Date: 20130828
  Transmission Date: 20140515
  Serious: No
  Sender: FDA-Public Use
  Company Number: US-PFIZER INC-2013209986

PATIENT
  Age: 66 Year
  Sex: Female
  Weight: 61 kg

DRUGS (1)
  1. VENLAFAXINE HCL [Suspect]
     Indication: MENOPAUSAL SYMPTOMS
     Dosage: 75 MG, 1X/DAY
     Route: 048
     Dates: start: 2006

REACTIONS (4)
  - Pyrexia [Not Recovered/Not Resolved]
  - Feeling cold [Not Recovered/Not Resolved]
  - Night sweats [Not Recovered/Not Resolved]
  - Inflammation [Recovered/Resolved]
